FAERS Safety Report 7228818-0 (Version None)
Quarter: 2011Q1

REPORT INFORMATION
  Report Type: 
  Country: None (occurrence: None)
  Receive Date: 20110117
  Receipt Date: 20110111
  Transmission Date: 20110831
  Serious: Yes (Hospitalization, Other)
  Sender: FDA-Public Use
  Company Number: US-ASTRAZENECA-2007UW24895

PATIENT
  Age: 52 Year
  Sex: Female
  Weight: 122.5 kg

DRUGS (67)
  1. SEROQUEL [Suspect]
     Route: 048
     Dates: start: 20030102
  2. SEROQUEL [Suspect]
     Route: 048
     Dates: start: 20030501
  3. SEROQUEL [Suspect]
     Route: 048
     Dates: start: 20030603
  4. SEROQUEL [Suspect]
     Route: 048
     Dates: start: 20031010
  5. SEROQUEL [Suspect]
     Route: 048
     Dates: start: 20040115
  6. SEROQUEL [Suspect]
     Route: 048
     Dates: start: 20040315
  7. SEROQUEL [Suspect]
     Route: 048
     Dates: start: 20040315
  8. SEROQUEL [Suspect]
     Route: 048
     Dates: start: 20041111
  9. SEROQUEL [Suspect]
     Route: 048
     Dates: start: 20050122
  10. PROZAC [Concomitant]
     Dates: start: 20020911, end: 20030228
  11. TRAZODONE HCL [Concomitant]
     Dates: start: 20040115
  12. LEXAPRO [Concomitant]
     Dates: start: 20050524
  13. TEMAZEPAM [Concomitant]
     Dates: start: 20021111
  14. SEROQUEL [Suspect]
     Route: 048
     Dates: start: 20030301
  15. SEROQUEL [Suspect]
     Route: 048
     Dates: start: 20030909
  16. SEROQUEL [Suspect]
     Route: 048
     Dates: start: 20031010
  17. SEROQUEL [Suspect]
     Route: 048
     Dates: start: 20040409
  18. SEROQUEL [Suspect]
     Route: 048
     Dates: start: 20040510
  19. SEROQUEL [Suspect]
     Route: 048
     Dates: start: 20041111
  20. SEROQUEL [Suspect]
     Route: 048
     Dates: start: 20050223
  21. TRAZODONE HCL [Concomitant]
     Dates: start: 20030102, end: 20030530
  22. CELEXA [Concomitant]
     Dates: start: 20030314, end: 20040616
  23. SEROQUEL [Suspect]
     Route: 048
     Dates: start: 20040115
  24. SEROQUEL [Suspect]
     Route: 048
     Dates: start: 20040206
  25. SEROQUEL [Suspect]
     Route: 048
     Dates: start: 20040206
  26. SEROQUEL [Suspect]
     Route: 048
     Dates: start: 20040618
  27. SEROQUEL [Suspect]
     Route: 048
     Dates: start: 20040720
  28. LEXAPRO [Concomitant]
     Dates: start: 20060905, end: 20061101
  29. SEROQUEL [Suspect]
     Indication: SLEEP DISORDER
     Dosage: 25-300 MG
     Route: 048
     Dates: start: 20021108
  30. SEROQUEL [Suspect]
     Route: 048
     Dates: start: 20021108
  31. SEROQUEL [Suspect]
     Route: 048
     Dates: start: 20030203
  32. SEROQUEL [Suspect]
     Route: 048
     Dates: start: 20040720
  33. SEROQUEL [Suspect]
     Route: 048
     Dates: start: 20041210
  34. LEXAPRO [Concomitant]
     Dates: start: 20040817, end: 20040913
  35. LEXAPRO [Concomitant]
     Dates: start: 20050907, end: 20060626
  36. SEROQUEL [Suspect]
     Route: 048
     Dates: start: 20030909
  37. SEROQUEL [Suspect]
     Route: 048
     Dates: start: 20041210
  38. SEROQUEL [Suspect]
     Route: 048
     Dates: start: 20050223
  39. SEROQUEL [Suspect]
     Route: 048
     Dates: start: 20050621, end: 20050621
  40. LEXAPRO [Concomitant]
     Dates: start: 20050124, end: 20050325
  41. PREDNISONE [Concomitant]
     Indication: BRONCHITIS
     Route: 048
     Dates: start: 20040608
  42. SEROQUEL [Suspect]
     Route: 048
     Dates: start: 20021108
  43. SEROQUEL [Suspect]
     Route: 048
     Dates: start: 20021202
  44. SEROQUEL [Suspect]
     Route: 048
     Dates: start: 20030407
  45. SEROQUEL [Suspect]
     Route: 048
     Dates: start: 20040820
  46. SEROQUEL [Suspect]
     Route: 048
     Dates: start: 20050122
  47. STARLIX [Concomitant]
     Dates: start: 20040218
  48. SPIRONOLACTONE [Concomitant]
     Dates: start: 20030407
  49. SEROQUEL [Suspect]
     Indication: DEPRESSION
     Dosage: 25-300 MG
     Route: 048
     Dates: start: 20021108
  50. SEROQUEL [Suspect]
     Route: 048
     Dates: start: 20030102
  51. SEROQUEL [Suspect]
     Route: 048
     Dates: start: 20030301
  52. SEROQUEL [Suspect]
     Route: 048
     Dates: start: 20030407
  53. SEROQUEL [Suspect]
     Route: 048
     Dates: start: 20040409
  54. SEROQUEL [Suspect]
     Route: 048
     Dates: start: 20040618
  55. SEROQUEL [Suspect]
     Route: 048
     Dates: start: 20040925
  56. SEROQUEL [Suspect]
     Route: 048
     Dates: start: 20040925
  57. SEROQUEL [Suspect]
     Route: 048
     Dates: start: 20021202
  58. SEROQUEL [Suspect]
     Route: 048
     Dates: start: 20030203
  59. SEROQUEL [Suspect]
     Route: 048
     Dates: start: 20030501
  60. SEROQUEL [Suspect]
     Route: 048
     Dates: start: 20030603
  61. SEROQUEL [Suspect]
     Route: 048
     Dates: start: 20040510
  62. SEROQUEL [Suspect]
     Route: 048
     Dates: start: 20040820
  63. SEROQUEL [Suspect]
     Route: 048
     Dates: start: 20050408
  64. SEROQUEL [Suspect]
     Route: 048
     Dates: start: 20050408
  65. SEROQUEL [Suspect]
     Route: 048
     Dates: start: 20050621, end: 20050621
  66. PROPRANOLOL [Concomitant]
     Route: 048
     Dates: start: 20021002
  67. ACTOS [Concomitant]
     Dates: start: 20040218

REACTIONS (22)
  - HYPERGLYCAEMIA [None]
  - HYPERTENSION [None]
  - DIABETIC COMA [None]
  - DIABETIC KETOACIDOSIS [None]
  - DISORDER OF ORBIT [None]
  - ARTHRITIS [None]
  - CEREBROVASCULAR ACCIDENT [None]
  - DIABETES MELLITUS INADEQUATE CONTROL [None]
  - OBESITY [None]
  - TYPE 2 DIABETES MELLITUS [None]
  - LIVER FUNCTION TEST ABNORMAL [None]
  - RHEUMATOID ARTHRITIS [None]
  - BLOOD CHOLESTEROL INCREASED [None]
  - PAIN [None]
  - SYSTEMIC LUPUS ERYTHEMATOSUS [None]
  - PAIN IN EXTREMITY [None]
  - MYOCARDIAL INFARCTION [None]
  - EYE DISORDER [None]
  - HEPATITIS C [None]
  - EYELID RETRACTION [None]
  - JOINT SPRAIN [None]
  - BASEDOW'S DISEASE [None]
